FAERS Safety Report 5621057-6 (Version None)
Quarter: 2008Q1

REPORT INFORMATION
  Report Type: 
  Country: None (occurrence: None)
  Receive Date: 20080208
  Receipt Date: 20080204
  Transmission Date: 20080703
  Serious: Yes (Other)
  Sender: FDA-Public Use
  Company Number: GB-PFIZER INC-2008011321

PATIENT
  Sex: Female

DRUGS (1)
  1. SOLU-CORTEF [Suspect]
     Route: 051

REACTIONS (3)
  - BLOOD PRESSURE DECREASED [None]
  - HYPERSENSITIVITY [None]
  - RASH [None]
